FAERS Safety Report 11028515 (Version 2)
Quarter: 2015Q2

REPORT INFORMATION
  Report Type: Spontaneous
  Country: US (occurrence: US)
  Receive Date: 20150414
  Receipt Date: 20150525
  Transmission Date: 20150821
  Serious: No
  Sender: FDA-Public Use
  Company Number: US-JNJFOC-20120300770

PATIENT
  Sex: Female

DRUGS (2)
  1. OTHER DERMATOLOGICAL PREPARATIONS [Concomitant]
     Indication: ECZEMA
     Route: 061
  2. ORTHO TRI CYCLEN [Suspect]
     Active Substance: ETHINYL ESTRADIOL\NORGESTIMATE
     Indication: CONTRACEPTION
     Route: 048

REACTIONS (3)
  - Eczema [Unknown]
  - Inappropriate schedule of drug administration [Unknown]
  - Dermatitis contact [Unknown]

NARRATIVE: CASE EVENT DATE: 2011
